FAERS Safety Report 21234815 (Version 1)
Quarter: 2022Q3

REPORT INFORMATION
  Report Type: Spontaneous
  Country: GB (occurrence: GB)
  Receive Date: 20220820
  Receipt Date: 20220820
  Transmission Date: 20221027
  Serious: Yes (Hospitalization, Disabling, Other)
  Sender: FDA-Public Use
  Company Number: None

PATIENT
  Sex: Male

DRUGS (1)
  1. QUETIAPINE FUMARATE [Suspect]
     Active Substance: QUETIAPINE FUMARATE
     Indication: Product used for unknown indication
     Dosage: 300MG

REACTIONS (5)
  - Medication error [Unknown]
  - Confusional state [Recovering/Resolving]
  - Chest pain [Recovering/Resolving]
  - Dysphagia [Recovering/Resolving]
  - Hypertension [Recovering/Resolving]
